FAERS Safety Report 4967691-8 (Version None)
Quarter: 2006Q2

REPORT INFORMATION
  Report Type: 
  Country: None (occurrence: None)
  Receive Date: 20060410
  Receipt Date: 20050325
  Transmission Date: 20061013
  Serious: Yes (Hospitalization, Other)
  Sender: FDA-Public Use
  Company Number: US-MERCK-0503USA04987

PATIENT
  Age: 56 Year
  Sex: Female
  Weight: 80 kg

DRUGS (16)
  1. VIOXX [Suspect]
     Indication: ARTHRITIS
     Route: 048
     Dates: start: 19990101, end: 20011001
  2. ASPIRIN [Concomitant]
     Route: 065
  3. CARDIZEM [Concomitant]
     Route: 065
  4. ESTRACE [Concomitant]
     Route: 065
  5. GLUCOPHAGE [Concomitant]
     Route: 065
  6. KLOR-CON [Concomitant]
     Route: 065
  7. HUMULIN [Concomitant]
     Route: 065
  8. LASIX [Concomitant]
     Route: 065
  9. LIPITOR [Concomitant]
     Route: 065
  10. LOPID [Concomitant]
     Route: 065
  11. NEXIUM [Concomitant]
     Route: 065
  12. NITROSTAT [Concomitant]
     Route: 065
  13. SECTRAL [Concomitant]
     Route: 065
  14. SYNTHROID [Concomitant]
     Route: 065
  15. XANAX [Concomitant]
     Route: 065
  16. VICODIN [Concomitant]
     Route: 065

REACTIONS (33)
  - ABDOMINAL HERNIA [None]
  - ABDOMINAL WALL DISORDER [None]
  - ANAEMIA [None]
  - ANGINA PECTORIS [None]
  - BLADDER DISORDER [None]
  - BLINDNESS UNILATERAL [None]
  - BRONCHITIS [None]
  - CEREBROVASCULAR ACCIDENT [None]
  - CHEST DISCOMFORT [None]
  - CORONARY ARTERY DISEASE [None]
  - COUGH [None]
  - CYSTOCELE [None]
  - DEAFNESS [None]
  - DRUG HYPERSENSITIVITY [None]
  - DYSPNOEA [None]
  - GASTRITIS [None]
  - GASTROENTERITIS [None]
  - HERPES ZOSTER [None]
  - HYPERVENTILATION [None]
  - LIMB DISCOMFORT [None]
  - MITRAL VALVE INCOMPETENCE [None]
  - MUSCLE INJURY [None]
  - PANCREATITIS [None]
  - PANIC DISORDER [None]
  - PERIANAL ABSCESS [None]
  - PYREXIA [None]
  - RETINAL HAEMORRHAGE [None]
  - RETINAL VASCULAR DISORDER [None]
  - RETINAL VASCULAR OCCLUSION [None]
  - RETINAL VEIN OCCLUSION [None]
  - RHINITIS ALLERGIC [None]
  - SINUS CONGESTION [None]
  - VENTRICULAR EXTRASYSTOLES [None]
